FAERS Safety Report 9303092 (Version 1)
Quarter: 2013Q2

REPORT INFORMATION
  Report Type: Spontaneous
  Country: FR (occurrence: None)
  Receive Date: 20130516
  Receipt Date: 20130516
  Transmission Date: 20140414
  Serious: Yes (Hospitalization)
  Sender: FDA-Public Use
  Company Number: SP06650

PATIENT
  Age: 53 Year
  Sex: Female

DRUGS (2)
  1. MOVIPREP (SOLUTION) [Suspect]
     Indication: BOWEL PREPARATION
     Route: 048
  2. PAROXETINE [Suspect]
     Route: 048

REACTIONS (2)
  - Diarrhoea haemorrhagic [None]
  - Colitis [None]
